FAERS Safety Report 15760333 (Version 1)
Quarter: 2018Q4

REPORT INFORMATION
  Report Type: Other
  Country: ES (occurrence: ES)
  Receive Date: 20181226
  Receipt Date: 20181226
  Transmission Date: 20190205
  Serious: Yes (Hospitalization, Other)
  Sender: FDA-Public Use
  Company Number: ES-APOTEX-2018AP027826

PATIENT
  Age: 51 Year
  Sex: Female

DRUGS (7)
  1. CITARABINA [Suspect]
     Active Substance: CYTARABINE
     Indication: ACUTE LYMPHOCYTIC LEUKAEMIA
     Dosage: 30 MG, UNK (30 MG ; IN TOTAL)
     Route: 042
     Dates: start: 20180312, end: 20180312
  2. MICAFUNGINA [Concomitant]
     Active Substance: MICAFUNGIN
     Indication: PRODUCT USED FOR UNKNOWN INDICATION
     Dosage: 50 MG, QD (50 MG DIA)
     Route: 065
     Dates: start: 20180309
  3. SOLTRIM [Concomitant]
     Active Substance: SULFAMETHOXAZOLE\TRIMETHOPRIM
     Indication: PRODUCT USED FOR UNKNOWN INDICATION
     Dosage: 1 DF, BID (1 UNIDAD CADA 12 HORAS)
     Route: 042
     Dates: start: 20180309
  4. ACICLOVIR [Concomitant]
     Active Substance: ACYCLOVIR
     Indication: PRODUCT USED FOR UNKNOWN INDICATION
     Dosage: 800 MG, BID (800MG/12H)
     Route: 048
     Dates: start: 20180309
  5. AMLODIPINO                         /00972401/ [Concomitant]
     Active Substance: AMLODIPINE BESYLATE
     Indication: PRODUCT USED FOR UNKNOWN INDICATION
     Dosage: 10 MG, QD (DIA)
     Route: 048
     Dates: start: 20180309
  6. IMATINIB. [Suspect]
     Active Substance: IMATINIB MESYLATE
     Indication: ACUTE LYMPHOCYTIC LEUKAEMIA
     Dosage: 600 MG, UNK (600 MG DE)
     Route: 048
     Dates: start: 20180309, end: 20180317
  7. LEVOTIROXINA                       /00068001/ [Concomitant]
     Indication: POST PROCEDURAL HYPOTHYROIDISM
     Dosage: 75 ?G, QD (75 MG DIA)
     Route: 048
     Dates: start: 20100101

REACTIONS (1)
  - Inappropriate antidiuretic hormone secretion [Recovered/Resolved]

NARRATIVE: CASE EVENT DATE: 20180325
